FAERS Safety Report 11169232 (Version 4)
Quarter: 2015Q3

REPORT INFORMATION
  Report Type: Spontaneous
  Country: US (occurrence: US)
  Receive Date: 20150605
  Receipt Date: 20150812
  Transmission Date: 20151125
  Serious: Yes (Death, Hospitalization, Other)
  Sender: FDA-Public Use
  Company Number: US-AMGEN-USASP2015054176

PATIENT
  Age: 86 Year
  Sex: Male
  Weight: 95.69 kg

DRUGS (1)
  1. PROLIA [Suspect]
     Active Substance: DENOSUMAB
     Indication: OSTEOPOROSIS
     Dosage: 60 MG, Q6MO
     Route: 058
     Dates: start: 20121220, end: 20140624

REACTIONS (4)
  - Lung neoplasm malignant [Fatal]
  - Metastases to central nervous system [Fatal]
  - Hospitalisation [Unknown]
  - Chronic obstructive pulmonary disease [Fatal]
